FAERS Safety Report 9004558 (Version 1)
Quarter: 2013Q1

REPORT INFORMATION
  Report Type: Spontaneous
  Country: US (occurrence: None)
  Receive Date: 20130103
  Receipt Date: 20130103
  Transmission Date: 20140127
  Serious: Yes (Life-Threatening)
  Sender: FDA-Public Use
  Company Number: None

PATIENT
  Age: 71 Year
  Sex: Female
  Weight: 120 kg

DRUGS (1)
  1. COUMADIN [Suspect]
     Dosage: 5 MG ONCE ADAY PO
     Route: 048

REACTIONS (2)
  - Haemorrhage [None]
  - Incorrect dose administered [None]
